FAERS Safety Report 19417885 (Version 8)
Quarter: 2021Q3

REPORT INFORMATION
  Report Type: Report from Study
  Country: ES (occurrence: ES)
  Receive Date: 20210615
  Receipt Date: 20210827
  Transmission Date: 20211014
  Serious: Yes (Hospitalization)
  Sender: FDA-Public Use
  Company Number: ES-EISAI MEDICAL RESEARCH-EC-2021-094411

PATIENT
  Age: 69 Year
  Sex: Male
  Weight: 70.4 kg

DRUGS (14)
  1. PEMBROLIZUMAB. [Suspect]
     Active Substance: PEMBROLIZUMAB
     Dosage: UP TO 35 CYCLES OR UNTIL DISEASE PROGRESSION
     Route: 042
     Dates: start: 20210519, end: 20210519
  2. KREON [Concomitant]
     Active Substance: PANCRELIPASE
     Dates: start: 202102
  3. OXYNORM [Concomitant]
     Active Substance: OXYCODONE HYDROCHLORIDE
     Dates: start: 202102
  4. MOTILIUM [Concomitant]
     Active Substance: DOMPERIDONE
     Dates: start: 20210518
  5. PEMBROLIZUMAB. [Suspect]
     Active Substance: PEMBROLIZUMAB
     Indication: PANCREATIC CARCINOMA
     Dosage: UP TO 35 CYCLES OR UNTIL DISEASE PROGRESSION
     Route: 042
     Dates: start: 20210428, end: 20210428
  6. GABAPENTIN. [Concomitant]
     Active Substance: GABAPENTIN
     Dates: start: 20210415
  7. LENVATINIB [Suspect]
     Active Substance: LENVATINIB
     Indication: PANCREATIC CARCINOMA
     Dosage: UP TO 35 CYCLES OR UNTIL DISEASE PROGRESSION
     Route: 048
     Dates: start: 20210428
  8. URBASON [METHYLPREDNISOLONE] [Concomitant]
     Active Substance: METHYLPREDNISOLONE
     Dates: start: 20210602, end: 20210619
  9. DUODART [Concomitant]
     Active Substance: DUTASTERIDE\TAMSULOSIN
     Dates: start: 202102
  10. DUPHALAC [Concomitant]
     Active Substance: LACTULOSE
     Dates: start: 20210415
  11. TARGIN [Concomitant]
     Active Substance: NALOXONE HYDROCHLORIDE\OXYCODONE HYDROCHLORIDE
     Dates: start: 202102
  12. RIVOTRIL [Concomitant]
     Active Substance: CLONAZEPAM
     Dates: start: 20210415
  13. URBASON [METHYLPREDNISOLONE] [Concomitant]
     Active Substance: METHYLPREDNISOLONE
     Dates: start: 20210526, end: 20210602
  14. MESTINON [Concomitant]
     Active Substance: PYRIDOSTIGMINE BROMIDE
     Dates: start: 20210526

REACTIONS (1)
  - Myasthenic syndrome [Recovering/Resolving]

NARRATIVE: CASE EVENT DATE: 20210603
